FAERS Safety Report 15306811 (Version 1)
Quarter: 2018Q3

REPORT INFORMATION
  Report Type: Spontaneous
  Country: DE (occurrence: DE)
  Receive Date: 20180822
  Receipt Date: 20180822
  Transmission Date: 20181010
  Serious: Yes (Other)
  Sender: FDA-Public Use
  Company Number: PHHY2018DE079356

PATIENT
  Age: 12 Year
  Sex: Male

DRUGS (1)
  1. EVEROLIMUS. [Suspect]
     Active Substance: EVEROLIMUS
     Indication: NOONAN SYNDROME
     Route: 065

REACTIONS (4)
  - Treatment failure [Unknown]
  - Left ventricle outflow tract obstruction [Unknown]
  - Product use in unapproved indication [Unknown]
  - Oral infection [Unknown]
